APPROVED DRUG PRODUCT: AMILORIDE HYDROCHLORIDE
Active Ingredient: AMILORIDE HYDROCHLORIDE
Strength: 5MG
Dosage Form/Route: TABLET;ORAL
Application: A070346 | Product #001 | TE Code: AB
Applicant: PH HEALTH LTD
Approved: Jan 22, 1986 | RLD: No | RS: Yes | Type: RX